FAERS Safety Report 7010779-0 (Version None)
Quarter: 2010Q3

REPORT INFORMATION
  Report Type: 
  Country: None (occurrence: None)
  Receive Date: 20100923
  Receipt Date: 20100913
  Transmission Date: 20110219
  Serious: Yes (Other)
  Sender: FDA-Public Use
  Company Number: US-PFIZER INC-2010116259

PATIENT
  Sex: Female

DRUGS (5)
  1. CHANTIX [Suspect]
     Indication: SMOKING CESSATION THERAPY
     Dosage: 1 MG, 2X/DAY
     Route: 048
     Dates: start: 20090101, end: 20090101
  2. CHANTIX [Suspect]
     Dosage: 1 MG, 2X/DAY
     Route: 048
     Dates: start: 20100801
  3. TENORMIN [Concomitant]
     Indication: MITRAL VALVE PROLAPSE
     Dosage: UNK, 2X/DAY
  4. VICODIN [Concomitant]
     Dosage: UNK
  5. BENADRYL [Concomitant]
     Dosage: 50 MG, UNK

REACTIONS (5)
  - ABDOMINAL DISCOMFORT [None]
  - ABDOMINAL DISTENSION [None]
  - ASTHMA [None]
  - FLATULENCE [None]
  - NAUSEA [None]
